FAERS Safety Report 12155515 (Version 2)
Quarter: 2016Q2

REPORT INFORMATION
  Report Type: Spontaneous
  Country: CA (occurrence: CA)
  Receive Date: 20160307
  Receipt Date: 20160506
  Transmission Date: 20160815
  Serious: Yes (Other)
  Sender: FDA-Public Use
  Company Number: CA-TEVA-640373USA

PATIENT
  Age: 53 Year
  Sex: Female

DRUGS (6)
  1. VITAMIN D [Concomitant]
     Active Substance: CHOLECALCIFEROL
     Route: 065
  2. CALCIUM [Concomitant]
     Active Substance: CALCIUM
     Route: 065
  3. ALENDRONIC ACID [Suspect]
     Active Substance: ALENDRONIC ACID
     Dosage: 70MG PER WEEK
     Route: 065
  4. BUDESONIDE. [Concomitant]
     Active Substance: BUDESONIDE
     Indication: ASTHMA
     Dosage: 200 MCG; 2 DOSES TWICE DAILY
     Route: 055
  5. MOMETASONE [Concomitant]
     Active Substance: MOMETASONE
     Indication: ASTHMA
     Dosage: 50 MCG; 2 DOSES TWICE DAILY
     Route: 055
  6. FORMOTEROL [Concomitant]
     Active Substance: FORMOTEROL
     Indication: ASTHMA
     Dosage: 6 MCG; 2 DOSES TWICE DAILY
     Route: 055

REACTIONS (1)
  - Fibula fracture [Recovered/Resolved]

NARRATIVE: CASE EVENT DATE: 201404
